FAERS Safety Report 9702870 (Version 1)
Quarter: 2013Q4

REPORT INFORMATION
  Report Type: Spontaneous
  Country: US (occurrence: None)
  Receive Date: 20131120
  Receipt Date: 20131120
  Transmission Date: 20140711
  Serious: Yes (Other)
  Sender: FDA-Public Use
  Company Number: 2012592

PATIENT
  Age: 43 Year
  Sex: Female
  Weight: 56.64 kg

DRUGS (4)
  1. LACTATED RINGER [Suspect]
     Indication: SPIDER VEIN
     Dosage: ABOUT 25 CC, NOT REPORTED, UKNOWN
     Dates: start: 20131105
  2. LIDOCAINE W/EPINEPHRINE [Suspect]
  3. VALIUM [Concomitant]
  4. LEVAQUIN [Concomitant]

REACTIONS (6)
  - Dizziness [None]
  - Flushing [None]
  - Erythema [None]
  - Blood pressure systolic increased [None]
  - Heart rate increased [None]
  - Infusion related reaction [None]
